FAERS Safety Report 16441116 (Version 1)
Quarter: 2019Q2

REPORT INFORMATION
  Report Type: Spontaneous
  Country: HR (occurrence: HR)
  Receive Date: 20190617
  Receipt Date: 20190617
  Transmission Date: 20190711
  Serious: Yes (Other)
  Sender: FDA-Public Use
  Company Number: HR-MYLANLABS-2019M1056701

PATIENT
  Age: 64 Year
  Sex: Female

DRUGS (2)
  1. BRUFEN [Suspect]
     Active Substance: IBUPROFEN
     Indication: SYNOVITIS
     Dosage: 2 DOSAGE FORM, QD
     Route: 048
     Dates: start: 20180413, end: 20180414
  2. AMLODIPINE BESILATE W/RAMIPRIL [Interacting]
     Active Substance: AMLODIPINE\RAMIPRIL
     Indication: ESSENTIAL HYPERTENSION
     Dosage: 2,5 MG RAMIPRIL + 5 MG AMLODIPIN
     Route: 048
     Dates: start: 20180413, end: 20180414

REACTIONS (4)
  - Headache [Recovered/Resolved]
  - Drug interaction [Unknown]
  - Insomnia [Recovered/Resolved]
  - Blood pressure increased [Recovered/Resolved]

NARRATIVE: CASE EVENT DATE: 20180414
